FAERS Safety Report 8384510-0 (Version None)
Quarter: 2012Q2

REPORT INFORMATION
  Report Type: 
  Country: None (occurrence: None)
  Receive Date: 20120524
  Receipt Date: 20120522
  Transmission Date: 20120825
  Serious: Yes (Death, Hospitalization, Other)
  Sender: FDA-Public Use
  Company Number: US-B.I. PHARMACEUTICALS,INC./RIDGEFIELD-2012-BP-09368BP

PATIENT
  Sex: Male
  Weight: 171 kg

DRUGS (12)
  1. ATENOLOL [Concomitant]
     Dosage: 100 MG
  2. GLUCOPHAGE [Concomitant]
     Dosage: 500 MG
  3. ALLOPURINOL [Concomitant]
  4. FOLIC ACID [Concomitant]
     Dosage: 1 MG
  5. METFORMIN HCL [Concomitant]
     Dosage: 500 MG
  6. LASIX [Concomitant]
     Dosage: 40 MG
  7. ZETIA [Concomitant]
     Dosage: 10 MG
  8. PRADAXA [Suspect]
     Indication: ATRIAL FIBRILLATION
     Dosage: 300 MG
     Route: 048
     Dates: start: 20101201, end: 20120401
  9. CAMPRAL [Concomitant]
  10. LASIX [Concomitant]
     Dosage: 20 MG
  11. LASIX [Concomitant]
     Dosage: 80 MG
  12. NIACIN [Concomitant]
     Dosage: 500 MG
     Route: 048

REACTIONS (8)
  - DECREASED APPETITE [None]
  - DYSPHAGIA [None]
  - HAEMORRHOIDAL HAEMORRHAGE [None]
  - RENAL FAILURE ACUTE [None]
  - HEPATITIS ALCOHOLIC [None]
  - ROAD TRAFFIC ACCIDENT [None]
  - LOWER GASTROINTESTINAL HAEMORRHAGE [None]
  - ANAEMIA [None]
